FAERS Safety Report 18108955 (Version 7)
Quarter: 2022Q3

REPORT INFORMATION
  Report Type: Spontaneous
  Country: US (occurrence: US)
  Receive Date: 20200804
  Receipt Date: 20220714
  Transmission Date: 20221026
  Serious: Yes (Other)
  Sender: FDA-Public Use
  Company Number: US-PFIZER INC-2020291872

PATIENT
  Age: 55 Year
  Sex: Female

DRUGS (4)
  1. XELJANZ [Suspect]
     Active Substance: TOFACITINIB CITRATE
     Indication: Rheumatoid arthritis
     Dosage: 5 MG, 2X/DAY
     Route: 048
     Dates: start: 20200726, end: 202102
  2. XELJANZ [Suspect]
     Active Substance: TOFACITINIB CITRATE
     Dosage: 5 MG, 2X/DAY
     Route: 048
     Dates: start: 2020, end: 2022
  3. GABAPENTIN [Concomitant]
     Active Substance: GABAPENTIN
  4. METHOTREXATE SODIUM [Concomitant]
     Active Substance: METHOTREXATE SODIUM
     Dosage: UNK

REACTIONS (17)
  - Myocardial infarction [Unknown]
  - Migraine [Recovering/Resolving]
  - Intentional dose omission [Unknown]
  - Therapeutic response unexpected [Unknown]
  - Allergic sinusitis [Unknown]
  - Condition aggravated [Recovering/Resolving]
  - Bone pain [Recovering/Resolving]
  - Headache [Recovering/Resolving]
  - Fatigue [Recovering/Resolving]
  - Feeling cold [Unknown]
  - Fibromyalgia [Unknown]
  - Pain in extremity [Unknown]
  - Arthralgia [Unknown]
  - Palpitations [Unknown]
  - Dyspnoea [Unknown]
  - Hypertension [Recovering/Resolving]
  - Inflammation [Unknown]

NARRATIVE: CASE EVENT DATE: 20200730
